FAERS Safety Report 7114364-1 (Version None)
Quarter: 2010Q4

REPORT INFORMATION
  Report Type: 
  Country: None (occurrence: None)
  Receive Date: 20101119
  Receipt Date: 20101026
  Transmission Date: 20110411
  Serious: Yes (Hospitalization)
  Sender: FDA-Public Use
  Company Number: PHHO2009ZA15008

PATIENT
  Sex: Male
  Weight: 16.6 kg

DRUGS (1)
  1. ELIDEL [Suspect]
     Indication: DERMATITIS ATOPIC
     Dosage: APPLIED BD
     Route: 061
     Dates: start: 20041124, end: 20041202

REACTIONS (4)
  - ADENOTONSILLECTOMY [None]
  - CONCOMITANT DISEASE PROGRESSION [None]
  - MOUTH BREATHING [None]
  - TONSILLITIS [None]
